FAERS Safety Report 10899293 (Version 2)
Quarter: 2015Q2

REPORT INFORMATION
  Report Type: Spontaneous
  Country: CH (occurrence: CH)
  Receive Date: 20150309
  Receipt Date: 20150504
  Transmission Date: 20150821
  Serious: Yes (Death, Other)
  Sender: FDA-Public Use
  Company Number: CH-GILEAD-2015-0141040

PATIENT
  Age: 45 Year
  Sex: Male
  Weight: 97 kg

DRUGS (6)
  1. PANTOZOL [Concomitant]
     Active Substance: PANTOPRAZOLE SODIUM
     Dosage: UNK
     Route: 065
     Dates: end: 20150128
  2. TRUXAL                             /00012101/ [Concomitant]
     Active Substance: CHLORPROTHIXENE
     Dosage: 2 DF, UNK
     Route: 065
     Dates: end: 2015
  3. SEROQUEL [Concomitant]
     Active Substance: QUETIAPINE FUMARATE
     Dosage: 400 MG, UNK
     Route: 048
     Dates: end: 20150110
  4. DAFALGAN [Concomitant]
     Active Substance: ACETAMINOPHEN
     Dosage: UNK
     Route: 065
  5. SOVALDI [Suspect]
     Active Substance: SOFOSBUVIR
     Indication: HEPATITIS C
     Dosage: 1 DF, UNK
     Route: 048
     Dates: start: 20150129
  6. RIBAVIRIN. [Concomitant]
     Active Substance: RIBAVIRIN
     Dosage: 200 MG, UNK
     Route: 048
     Dates: start: 20150129

REACTIONS (5)
  - Death [Fatal]
  - Chest pain [Unknown]
  - Neck pain [Unknown]
  - Musculoskeletal stiffness [Unknown]
  - Influenza [Unknown]

NARRATIVE: CASE EVENT DATE: 20150225
